FAERS Safety Report 13541342 (Version 1)
Quarter: 2017Q2

REPORT INFORMATION
  Report Type: Spontaneous
  Country: US (occurrence: US)
  Receive Date: 20170512
  Receipt Date: 20170512
  Transmission Date: 20170830
  Serious: Yes (Hospitalization)
  Sender: FDA-Public Use
  Company Number: US-SA-2016SA081827

PATIENT
  Age: 46 Year
  Sex: Male

DRUGS (1)
  1. APIDRA [Suspect]
     Active Substance: INSULIN GLULISINE
     Indication: TYPE 1 DIABETES MELLITUS
     Dosage: DOSE- UP TO 100 U / DAY VARIES (ON?PUMP)?UPTO-50-60 UNITS:34 UNITS OF APIDRA
     Route: 065
     Dates: start: 2015

REACTIONS (1)
  - Blood glucose increased [Unknown]
